FAERS Safety Report 9651054 (Version 1)
Quarter: 2013Q4

REPORT INFORMATION
  Report Type: Spontaneous
  Country: KR (occurrence: KR)
  Receive Date: 20131029
  Receipt Date: 20131029
  Transmission Date: 20140711
  Serious: Yes (Death, Other)
  Sender: FDA-Public Use
  Company Number: KR-PFIZER INC-2013306163

PATIENT
  Age: 39 Year
  Sex: Female

DRUGS (2)
  1. PACLITAXEL [Suspect]
     Indication: OVARIAN CANCER STAGE III
     Dosage: DAY 9, POD 16
  2. CARBOPLATIN [Suspect]
     Indication: OVARIAN CANCER STAGE III
     Dosage: DAY 9, POD 16

REACTIONS (3)
  - Hyperammonaemia [Fatal]
  - Neutropenia [Not Recovered/Not Resolved]
  - Sepsis [Not Recovered/Not Resolved]
